FAERS Safety Report 12330119 (Version 5)
Quarter: 2016Q3

REPORT INFORMATION
  Report Type: Report from Study
  Country: HU (occurrence: HU)
  Receive Date: 20160504
  Receipt Date: 20160830
  Transmission Date: 20161109
  Serious: Yes (Hospitalization, Other)
  Sender: FDA-Public Use
  Company Number: HU-ROCHE-1727381

PATIENT
  Age: 75 Year
  Sex: Male

DRUGS (2)
  1. ZELBORAF [Suspect]
     Active Substance: VEMURAFENIB
     Route: 048
     Dates: start: 20160325
  2. ZELBORAF [Suspect]
     Active Substance: VEMURAFENIB
     Indication: MALIGNANT MELANOMA
     Route: 048
     Dates: start: 20160225, end: 20160325

REACTIONS (16)
  - Lip dry [Unknown]
  - Hair colour changes [Unknown]
  - Decreased appetite [Unknown]
  - Alopecia [Not Recovered/Not Resolved]
  - Hiccups [Unknown]
  - Erythema [Unknown]
  - Back pain [Unknown]
  - Pain of skin [Recovered/Resolved]
  - Sunburn [Not Recovered/Not Resolved]
  - Paraesthesia [Recovered/Resolved]
  - Squamous cell carcinoma [Unknown]
  - Hypokalaemia [Recovered/Resolved]
  - Pruritus [Unknown]
  - Dry skin [Unknown]
  - Cheilitis [Not Recovered/Not Resolved]
  - Asthenia [Unknown]

NARRATIVE: CASE EVENT DATE: 20160229
